FAERS Safety Report 4841797-6 (Version None)
Quarter: 2005Q4

REPORT INFORMATION
  Report Type: 
  Country: None (occurrence: None)
  Receive Date: 20051130
  Receipt Date: 20051125
  Transmission Date: 20060501
  Serious: Yes (Hospitalization)
  Sender: FDA-Public Use
  Company Number: PHNR2005AU01640

PATIENT
  Age: 70 Year
  Sex: Male
  Weight: 83 kg

DRUGS (13)
  1. LESCOL [Suspect]
     Indication: METABOLIC DISORDER
     Route: 048
     Dates: end: 20050401
  2. COLCHICINE [Suspect]
     Indication: GOUT
     Dosage: UNK, PRN
     Dates: start: 20050315, end: 20050402
  3. NITRO-DUR [Concomitant]
     Indication: MYOCARDIAL ISCHAEMIA
  4. DILATREND [Concomitant]
     Indication: MYOCARDIAL ISCHAEMIA
  5. CARDIPRIN 100 [Concomitant]
     Indication: MYOCARDIAL ISCHAEMIA
  6. PLAVIX [Concomitant]
     Indication: MYOCARDIAL ISCHAEMIA
  7. AVAPRO [Concomitant]
     Indication: ESSENTIAL HYPERTENSION
  8. DIAMICRON [Concomitant]
     Indication: DIABETES MELLITUS
  9. MIXTARD HUMAN 70/30 [Concomitant]
     Indication: DIABETES MELLITUS
  10. ALLOPURINOL [Concomitant]
     Indication: GOUT
  11. LASIX [Concomitant]
     Indication: ESSENTIAL HYPERTENSION
  12. COD-LIVER OIL [Concomitant]
  13. NASONEX [Concomitant]

REACTIONS (9)
  - ASTHENIA [None]
  - BLOOD CREATINE PHOSPHOKINASE INCREASED [None]
  - DIABETIC NEUROPATHY [None]
  - DIFFICULTY IN WALKING [None]
  - MYALGIA [None]
  - MYOPATHY TOXIC [None]
  - MYOSITIS [None]
  - NERVE CONDUCTION STUDIES ABNORMAL [None]
  - POLYNEUROPATHY [None]
